FAERS Safety Report 9753873 (Version 2)
Quarter: 2015Q3

REPORT INFORMATION
  Report Type: Spontaneous
  Country: US (occurrence: US)
  Receive Date: 20131213
  Receipt Date: 20150805
  Transmission Date: 20151125
  Serious: No
  Sender: FDA-Public Use
  Company Number: US-GILEAD-2010-0027752

PATIENT
  Age: 81 Year
  Sex: Female

DRUGS (15)
  1. LETAIRIS [Suspect]
     Active Substance: AMBRISENTAN
     Indication: PULMONARY ARTERIAL HYPERTENSION
     Route: 048
     Dates: start: 20090914
  2. ALDACTONE [Concomitant]
     Active Substance: SPIRONOLACTONE
  3. HYDROXYZ [Concomitant]
  4. ERYTHROM [Concomitant]
  5. IRON [Concomitant]
     Active Substance: IRON
  6. LASIX [Concomitant]
     Active Substance: FUROSEMIDE
  7. ALIGN [Concomitant]
     Active Substance: BIFIDOBACTERIUM LONGUM SUBSP. INFANTIS
  8. SYMBICORT [Concomitant]
     Active Substance: BUDESONIDE\FORMOTEROL FUMARATE DIHYDRATE
  9. BENTYL [Concomitant]
     Active Substance: DICYCLOMINE HYDROCHLORIDE
  10. ZYRTEC [Concomitant]
     Active Substance: CETIRIZINE HYDROCHLORIDE
  11. NITROGLYCERIN. [Concomitant]
     Active Substance: NITROGLYCERIN
  12. ALLOPURINOL. [Concomitant]
     Active Substance: ALLOPURINOL
  13. SINGULAIR [Concomitant]
     Active Substance: MONTELUKAST SODIUM
  14. PROBENECID. [Concomitant]
     Active Substance: PROBENECID
  15. XOPENEX [Concomitant]
     Active Substance: LEVALBUTEROL HYDROCHLORIDE

REACTIONS (1)
  - Headache [Not Recovered/Not Resolved]

NARRATIVE: CASE EVENT DATE: 20100201
